FAERS Safety Report 7749360-4 (Version None)
Quarter: 2011Q3

REPORT INFORMATION
  Report Type: 
  Country: None (occurrence: None)
  Receive Date: 20110909
  Receipt Date: 20110825
  Transmission Date: 20111222
  Serious: Yes (Hospitalization)
  Sender: FDA-Public Use
  Company Number: AUR-APL-2011-01746

PATIENT
  Age: 58 Year
  Sex: Female
  Weight: 65 kg

DRUGS (7)
  1. CANDESARTAN CILEXETIL [Concomitant]
  2. CARBAMAZEPINE [Concomitant]
  3. FLUTICASONE PROPIONATE/SALMETEROL [Concomitant]
  4. FLUOXETINE HCL [Concomitant]
  5. FLUCONAZOLE [Suspect]
     Indication: CANDIDIASIS
     Dosage: (150 MG)
     Dates: start: 20110111, end: 20110111
  6. CO-CODAMOL (PANADEINE CO) [Concomitant]
  7. ALBUTEROL SULFATE [Concomitant]

REACTIONS (10)
  - LIVER FUNCTION TEST ABNORMAL [None]
  - FAECES PALE [None]
  - BLOOD BILIRUBIN INCREASED [None]
  - FATIGUE [None]
  - JAUNDICE [None]
  - BLOOD ALKALINE PHOSPHATASE INCREASED [None]
  - PRURITUS [None]
  - ALANINE AMINOTRANSFERASE INCREASED [None]
  - GAMMA-GLUTAMYLTRANSFERASE INCREASED [None]
  - CHROMATURIA [None]
